FAERS Safety Report 11202012 (Version 1)
Quarter: 2015Q2

REPORT INFORMATION
  Report Type: Spontaneous
  Country: SE (occurrence: SE)
  Receive Date: 20150619
  Receipt Date: 20150619
  Transmission Date: 20150821
  Serious: Yes (Other)
  Sender: FDA-Public Use
  Company Number: SE-SA-2015SA085383

PATIENT
  Age: 82 Year
  Sex: Male

DRUGS (12)
  1. METOPROLOL [Concomitant]
     Active Substance: METOPROLOL
  2. ENALAPRIL [Concomitant]
     Active Substance: ENALAPRIL
  3. CLAFORAN [Suspect]
     Active Substance: CEFOTAXIME SODIUM
     Indication: INFECTION
     Dosage: FORM: POWDER FOR SOLUTION FOR INJECTION
     Dates: start: 20150408, end: 20150411
  4. PREDNISOLONE. [Concomitant]
     Active Substance: PREDNISOLONE
  5. BRILIQUE [Concomitant]
     Active Substance: TICAGRELOR
     Dosage: STRENGTH: 90MG
  6. DALACIN [Suspect]
     Active Substance: CLINDAMYCIN\CLINDAMYCIN PHOSPHATE
     Indication: INFECTION
     Route: 048
     Dates: start: 20150402, end: 20150408
  7. SOBRIL [Concomitant]
     Active Substance: OXAZEPAM
  8. ATORVASTATIN [Suspect]
     Active Substance: ATORVASTATIN
     Indication: HYPERLIPIDAEMIA
     Route: 048
     Dates: start: 20150202, end: 20150410
  9. TROMBYL [Concomitant]
     Active Substance: ASPIRIN
     Dosage: STRENGTH: 75MG
  10. FINASTERIDE. [Concomitant]
     Active Substance: FINASTERIDE
  11. PANTOLOC [Concomitant]
     Active Substance: PANTOPRAZOLE SODIUM
     Dosage: STRENGTH: 20MG?ENTERIC-COATED TABLET
  12. GLYCERYL TRINITRATE [Concomitant]
     Active Substance: NITROGLYCERIN
     Dosage: 0.4 MG/DOSE

REACTIONS (1)
  - Hepatic failure [Not Recovered/Not Resolved]

NARRATIVE: CASE EVENT DATE: 20150408
